APPROVED DRUG PRODUCT: LAMOTRIGINE
Active Ingredient: LAMOTRIGINE
Strength: 5MG
Dosage Form/Route: TABLET, FOR SUSPENSION;ORAL
Application: A079099 | Product #001 | TE Code: AB
Applicant: GLENMARK PHARMACEUTICALS LTD
Approved: Feb 19, 2009 | RLD: No | RS: No | Type: RX